FAERS Safety Report 6912409-2 (Version None)
Quarter: 2010Q3

REPORT INFORMATION
  Report Type: 
  Country: None (occurrence: None)
  Receive Date: 20100806
  Receipt Date: 20080414
  Transmission Date: 20110219
  Serious: No
  Sender: FDA-Public Use
  Company Number: US-PFIZER INC-2008029886

PATIENT
  Sex: Male
  Weight: 22.727 kg

DRUGS (1)
  1. DETROL LA [Suspect]
     Indication: ENURESIS
     Route: 048
     Dates: start: 20080320, end: 20080327

REACTIONS (2)
  - DRUG INEFFECTIVE [None]
  - WRONG TECHNIQUE IN DRUG USAGE PROCESS [None]
